FAERS Safety Report 5694463-1 (Version None)
Quarter: 2008Q2

REPORT INFORMATION
  Report Type: 
  Country: None (occurrence: None)
  Receive Date: 20080404
  Receipt Date: 20080326
  Transmission Date: 20081010
  Serious: Yes (Congenital Anomaly)
  Sender: FDA-Public Use
  Company Number: PHBS2008PT03701

PATIENT
  Age: 1 Day
  Sex: Male
  Weight: 3.16 kg

DRUGS (2)
  1. CARBAMAZEPINE [Suspect]
     Dosage: MATERNAL DOSE: 600 MG/D
     Route: 064
  2. FOLIC ACID [Concomitant]
     Route: 064

REACTIONS (6)
  - ARACHNOID CYST [None]
  - CARNITINE DECREASED [None]
  - CEREBRAL DISORDER [None]
  - CONGENITAL CARNITINE DEFICIENCY [None]
  - DRUG EXPOSURE DURING PREGNANCY [None]
  - NUCLEAR MAGNETIC RESONANCE IMAGING BRAIN ABNORMAL [None]
